FAERS Safety Report 9224209 (Version 1)
Quarter: 2013Q2

REPORT INFORMATION
  Report Type: Spontaneous
  Country: US (occurrence: None)
  Receive Date: 20130409
  Receipt Date: 20130409
  Transmission Date: 20140414
  Serious: No
  Sender: FDA-Public Use
  Company Number: None

PATIENT
  Age: 64 Year
  Sex: Female

DRUGS (3)
  1. VELCADE [Suspect]
     Indication: PLASMA CELL MYELOMA
  2. DOXIL [Suspect]
     Indication: PLASMA CELL MYELOMA
  3. ADRIAMYCIN [Suspect]
     Indication: PLASMA CELL MYELOMA

REACTIONS (2)
  - Weight decreased [None]
  - Fatigue [None]
